FAERS Safety Report 20028055 (Version 2)
Quarter: 2021Q4

REPORT INFORMATION
  Report Type: Spontaneous
  Country: ES (occurrence: ES)
  Receive Date: 20211103
  Receipt Date: 20211116
  Transmission Date: 20220303
  Serious: Yes (Other)
  Sender: FDA-Public Use
  Company Number: ES-BIOVITRUM-2021ES9615

PATIENT
  Sex: Female

DRUGS (2)
  1. DOPTELET [Suspect]
     Active Substance: AVATROMBOPAG MALEATE
     Indication: Immune thrombocytopenia
     Route: 065
     Dates: start: 20210526
  2. DOPTELET [Suspect]
     Active Substance: AVATROMBOPAG MALEATE
     Route: 065

REACTIONS (5)
  - Haemorrhage [Unknown]
  - Fibrin D dimer increased [Unknown]
  - Pain in extremity [Unknown]
  - Platelet count increased [Unknown]
  - Headache [Unknown]
